FAERS Safety Report 6322052-4 (Version None)
Quarter: 2009Q3

REPORT INFORMATION
  Report Type: 
  Country: None (occurrence: None)
  Receive Date: 20090824
  Receipt Date: 20090818
  Transmission Date: 20100115
  Serious: No
  Sender: FDA-Public Use
  Company Number: US-JNJFOC-20090806313

PATIENT
  Sex: Female
  Weight: 70.31 kg

DRUGS (6)
  1. DURAGESIC-100 [Suspect]
     Indication: BACK PAIN
     Route: 062
  2. SYNTHROID [Concomitant]
     Indication: THYROID DISORDER
     Dosage: 1.75 MCG
     Route: 048
  3. ZOLOFT [Concomitant]
     Indication: ANXIETY
     Route: 048
  4. PREMPRO [Concomitant]
     Indication: HORMONE REPLACEMENT THERAPY
     Dosage: 625/5 MG
     Route: 048
  5. NORCO [Concomitant]
     Indication: BACK PAIN
     Dosage: 650/20 MG
     Route: 048
  6. LYRICA [Concomitant]
     Indication: BACK PAIN
     Route: 048

REACTIONS (6)
  - DEVICE ADHESION ISSUE [None]
  - DRUG ADMINISTERED AT INAPPROPRIATE SITE [None]
  - DRUG DOSE OMISSION [None]
  - DRUG INEFFECTIVE [None]
  - WITHDRAWAL SYNDROME [None]
  - WRONG TECHNIQUE IN DRUG USAGE PROCESS [None]
